FAERS Safety Report 10382240 (Version 3)
Quarter: 2014Q4

REPORT INFORMATION
  Report Type: Report from Study
  Country: US (occurrence: US)
  Receive Date: 20140813
  Receipt Date: 20141010
  Transmission Date: 20150528
  Serious: Yes (Death, Life-Threatening, Hospitalization)
  Sender: FDA-Public Use
  Company Number: US-009507513-1408USA007707

PATIENT
  Age: 48 Year
  Sex: Female
  Weight: 93 kg

DRUGS (6)
  1. VORINOSTAT [Suspect]
     Active Substance: VORINOSTAT
     Dosage: 500 MG (3X/DAY) ON DAY 1-3
     Route: 048
     Dates: start: 20140724, end: 20140726
  2. IDARUBICIN [Suspect]
     Active Substance: IDARUBICIN
     Dosage: 8 MG/M2/DAY OVER 15 MIN ON DAYS 4-5
     Route: 042
     Dates: start: 20140727, end: 20140728
  3. CYTARABINE. [Suspect]
     Active Substance: CYTARABINE
     Indication: ACUTE MYELOID LEUKAEMIA
     Dosage: 750MG/M2/DAY CONTINUOUS ON DAYS 4-6
     Route: 042
     Dates: start: 20140628, end: 20140630
  4. CYTARABINE. [Suspect]
     Active Substance: CYTARABINE
     Dosage: 750MG/M2/DAY CONTINUOUS ON DAYS 4-6
     Route: 042
     Dates: start: 20140727, end: 20140729
  5. IDARUBICIN [Suspect]
     Active Substance: IDARUBICIN
     Indication: ACUTE MYELOID LEUKAEMIA
     Dosage: 8 MG/M2/DAY OVER 15 MIN ON DAYS 4-5
     Route: 042
     Dates: start: 20140628, end: 20140629
  6. VORINOSTAT [Suspect]
     Active Substance: VORINOSTAT
     Indication: ACUTE MYELOID LEUKAEMIA
     Dosage: 500 MG (3X/DAY) ON DAY 1-3
     Route: 048
     Dates: start: 20140625, end: 20140627

REACTIONS (13)
  - Respiratory failure [Fatal]
  - Platelet count decreased [Unknown]
  - Device related infection [Unknown]
  - Kidney infection [Unknown]
  - Pain of skin [Unknown]
  - Pulmonary oedema [Unknown]
  - Decreased appetite [Unknown]
  - White blood cell count decreased [Unknown]
  - Sepsis [Unknown]
  - Abdominal pain [Unknown]
  - Febrile neutropenia [Unknown]
  - Localised oedema [Unknown]
  - Hypotension [Unknown]

NARRATIVE: CASE EVENT DATE: 20140807
